FAERS Safety Report 9290223 (Version 2)
Quarter: 2013Q3

REPORT INFORMATION
  Report Type: Report from Study
  Country: US (occurrence: US)
  Receive Date: 20130515
  Receipt Date: 20130709
  Transmission Date: 20140515
  Serious: Yes (Hospitalization)
  Sender: FDA-Public Use
  Company Number: US-UCBSA-079766

PATIENT
  Age: 22 Year
  Sex: Male

DRUGS (17)
  1. CIMZIA [Suspect]
     Indication: CROHN^S DISEASE
     Dosage: AT WEEKS 0, 2 AND 4 AND THEN EVERY 4 WEEKS THEREAFTER
     Route: 058
     Dates: start: 20130214, end: 2013
  2. BACLOFEN [Concomitant]
     Indication: MYALGIA
     Dosage: AS NECESSARY
     Route: 048
  3. FAMOTIDINE [Concomitant]
     Indication: PROPHYLAXIS AGAINST GASTROINTESTINAL ULCER
  4. BETA CAROTENE [Concomitant]
     Indication: VITAMIN SUPPLEMENTATION
     Dosage: DOSE: 25000 UNITS
  5. CIPRO [Concomitant]
     Indication: CROHN^S DISEASE
     Route: 048
     Dates: start: 20121206, end: 20130217
  6. CIPRO [Concomitant]
     Indication: ENTEROCUTANEOUS FISTULA
     Route: 048
     Dates: start: 20121206, end: 20130217
  7. CIPRO [Concomitant]
     Indication: CROHN^S DISEASE
     Route: 048
     Dates: start: 20130302
  8. CIPRO [Concomitant]
     Indication: ENTEROCUTANEOUS FISTULA
     Route: 048
     Dates: start: 20130302
  9. FOLIC ACID [Concomitant]
     Indication: MINERAL SUPPLEMENTATION
     Dosage: 1 MG DAILY
     Route: 048
     Dates: start: 201212
  10. HYDROCORTISONE CREAM [Concomitant]
     Indication: RASH
  11. METHOTREXATE [Concomitant]
     Indication: CROHN^S DISEASE
     Route: 058
     Dates: start: 201212, end: 201302
  12. FLAGYL [Concomitant]
     Indication: CROHN^S DISEASE
     Dosage: UNKNOWN DOSE
     Dates: start: 20121206
  13. PREDNISONE [Concomitant]
     Indication: CROHN^S DISEASE
     Dosage: UNKNOWN DOSE
     Dates: start: 200412, end: 200412
  14. PREDNISONE [Concomitant]
     Indication: CROHN^S DISEASE
     Dosage: UNKNOWN DOSE
     Dates: start: 20130122, end: 201304
  15. BACTRIM DS 800 [Concomitant]
     Indication: PROPHYLAXIS
     Dosage: DOSE: 162 MG
     Route: 048
     Dates: start: 20130122
  16. MIRTAZAPINE [Concomitant]
     Indication: DEPRESSION
     Dosage: DAILY DOSE : 30 MG
     Route: 048
  17. LEVOFLOXACIN [Concomitant]
     Dates: start: 20130217, end: 201303

REACTIONS (2)
  - Wound infection [Recovered/Resolved]
  - Localised intraabdominal fluid collection [Recovered/Resolved]
